FAERS Safety Report 6250874-7 (Version None)
Quarter: 2009Q2

REPORT INFORMATION
  Report Type: 
  Country: None (occurrence: None)
  Receive Date: 20090630
  Receipt Date: 20090318
  Transmission Date: 20091009
  Serious: No
  Sender: FDA-Public Use
  Company Number: US-BAUSCH-2009BL001233

PATIENT
  Age: 40 Year
  Sex: Female

DRUGS (2)
  1. ALAWAY [Suspect]
     Indication: OCULAR HYPERAEMIA
     Route: 047
     Dates: start: 20090310, end: 20090316
  2. ALAWAY [Suspect]
     Indication: EYE PRURITUS
     Route: 047
     Dates: start: 20090310, end: 20090316

REACTIONS (2)
  - DRUG INEFFECTIVE [None]
  - EYE PAIN [None]
